FAERS Safety Report 4422989-7 (Version None)
Quarter: 2004Q3

REPORT INFORMATION
  Report Type: 
  Country: None (occurrence: None)
  Receive Date: 20040810
  Receipt Date: 20040727
  Transmission Date: 20050211
  Serious: Yes (Death)
  Sender: FDA-Public Use
  Company Number: 2004S1002212

PATIENT
  Age: 43 Year
  Sex: Female

DRUGS (7)
  1. CLOZAPINE [Suspect]
     Dosage: 300MG Q HS, ORAL
     Route: 048
     Dates: start: 20040326, end: 20040627
  2. ROFECOXIB [Concomitant]
  3. LORAZEPAM [Concomitant]
  4. BENZTROPINE MESYLATE [Concomitant]
  5. TOLTERODINE LA [Concomitant]
  6. LITHIUM CARBONATE [Concomitant]
  7. FLUPHENAZINE INJECTION [Concomitant]

REACTIONS (2)
  - HEPATIC TRAUMA [None]
  - VICTIM OF CRIME [None]
